FAERS Safety Report 19409522 (Version 2)
Quarter: 2025Q2

REPORT INFORMATION
  Report Type: Spontaneous
  Country: US (occurrence: US)
  Receive Date: 20210614
  Receipt Date: 20250620
  Transmission Date: 20250716
  Serious: Yes (Other)
  Sender: PURDUE
  Company Number: US-PURDUE-USA-2020-0199312

PATIENT
  Age: 50 Year
  Sex: Female

DRUGS (2)
  1. OXYCONTIN [Suspect]
     Active Substance: OXYCODONE HYDROCHLORIDE
     Indication: Pain management
     Route: 048
  2. OXYCONTIN [Suspect]
     Active Substance: OXYCODONE HYDROCHLORIDE
     Dosage: 80 MILLIGRAM, TID ( TEN YEARS AGO, SINCE SHE WAS 28)
     Route: 048

REACTIONS (5)
  - Drug dependence [Unknown]
  - Bladder disorder [Unknown]
  - Generalised oedema [Unknown]
  - Peripheral swelling [Unknown]
  - Unevaluable event [Unknown]
